FAERS Safety Report 8594703-5 (Version None)
Quarter: 2012Q3

REPORT INFORMATION
  Report Type: 
  Country: None (occurrence: None)
  Receive Date: 20120815
  Receipt Date: 20120808
  Transmission Date: 20120928
  Serious: Yes (Hospitalization)
  Sender: FDA-Public Use
  Company Number: US-UCBSA-063336

PATIENT
  Age: 23 Year
  Sex: Male
  Weight: 60 kg

DRUGS (14)
  1. VITAMIN B-12 [Concomitant]
     Indication: IMMUNODEFICIENCY
     Dosage: INJECT 1ML SUBCUTANEOUSLY MONTHLY, 1000 MCG/ML, TUBERCULIN SYRINGE
     Route: 058
  2. LACTINEX [Concomitant]
     Dosage: 1 CAP
     Route: 048
  3. ULTRAM [Concomitant]
     Dosage: STRENGTH: 50MG ;1-2 TABS Q6H
     Route: 048
  4. BOOST PLUS [Concomitant]
     Indication: MEDICAL DIET
     Dosage: 1 CAN DAILY; LIQUID
     Route: 048
  5. VITAMIN B-12 [Concomitant]
     Indication: VITAMIN B12 DEFICIENCY
     Dosage: INJECT 1ML SUBCUTANEOUSLY MONTHLY, 1000 MCG/ML, TUBERCULIN SYRINGE
     Route: 058
  6. DELTASONE [Suspect]
     Indication: CROHN'S DISEASE
     Dosage: STRENGTH:5MG; 4 TABLETS DAILY
     Route: 048
     Dates: start: 20101112
  7. FOLIC ACID [Concomitant]
     Dosage: TAKE 1 TABLET BY MOUTH DAILY
     Route: 048
  8. CIMZIA [Suspect]
     Indication: CROHN'S DISEASE
     Route: 058
     Dates: start: 20101226
  9. VITAMIN B-12 [Concomitant]
     Indication: CROHN'S DISEASE
     Dosage: INJECT 1ML SUBCUTANEOUSLY MONTHLY, 1000 MCG/ML, TUBERCULIN SYRINGE
     Route: 058
  10. PRILOSEC [Concomitant]
     Dosage: 1 CAP DAILY
     Route: 048
  11. MULTI MAX PO [Concomitant]
     Route: 048
  12. METHOTREXATE [Concomitant]
     Indication: CROHN'S DISEASE
     Dosage: 25 MG/ML INJECTION
     Route: 058
     Dates: start: 20101116
  13. CALCIUM CARBONATE-VITAMIN D [Concomitant]
     Dosage: 2 TABLETS DAILY
     Route: 048
  14. VITAMIN B-12 [Concomitant]
     Indication: IRON DEFICIENCY
     Dosage: INJECT 1ML SUBCUTANEOUSLY MONTHLY, 1000 MCG/ML, TUBERCULIN SYRINGE
     Route: 058

REACTIONS (1)
  - PNEUMONIA [None]
